FAERS Safety Report 7516504-9 (Version None)
Quarter: 2011Q2

REPORT INFORMATION
  Report Type: 
  Country: None (occurrence: None)
  Receive Date: 20110601
  Receipt Date: 20110520
  Transmission Date: 20111010
  Serious: Yes (Other)
  Sender: FDA-Public Use
  Company Number: A0927526A

PATIENT
  Age: 61 Year
  Sex: Female

DRUGS (8)
  1. TYKERB [Suspect]
     Indication: BREAST CANCER
     Dosage: 3TAB PER DAY
     Route: 048
     Dates: start: 20110505
  2. ALFALFA [Concomitant]
  3. NEXIUM [Concomitant]
  4. CALCIUM CARBONATE [Concomitant]
  5. CYMBALTA [Concomitant]
  6. METHYLIN SR [Concomitant]
  7. VITAMIN D [Concomitant]
  8. XANAX [Concomitant]

REACTIONS (10)
  - NAUSEA [None]
  - DIARRHOEA [None]
  - COUGH [None]
  - DYSPHONIA [None]
  - CROUP INFECTIOUS [None]
  - FATIGUE [None]
  - HEADACHE [None]
  - SOMNOLENCE [None]
  - VOMITING [None]
  - HAEMATOCHEZIA [None]
